FAERS Safety Report 6014692-7 (Version None)
Quarter: 2008Q4

REPORT INFORMATION
  Report Type: 
  Country: None (occurrence: None)
  Receive Date: 20081219
  Receipt Date: 20081212
  Transmission Date: 20090506
  Serious: Yes (Hospitalization)
  Sender: FDA-Public Use
  Company Number: CA-ELI_LILLY_AND_COMPANY-CA200810007381

PATIENT
  Age: 87 Year
  Sex: Female

DRUGS (11)
  1. FORTEO [Suspect]
     Indication: OSTEOPOROSIS
     Dosage: 20 UG, DAILY (1/D)
     Route: 058
     Dates: start: 20080912, end: 20081201
  2. RAMIPRIL [Concomitant]
  3. METOPROLOL TARTRATE [Concomitant]
  4. ADALAT [Concomitant]
  5. LIPITOR [Concomitant]
  6. PANTOLOC /01263201/ [Concomitant]
  7. ASPIRIN [Concomitant]
  8. VITALUX [Concomitant]
  9. CALCIUM [Concomitant]
  10. VITAMIN D [Concomitant]
  11. VITAMIN B-12 [Concomitant]

REACTIONS (5)
  - ARTHRALGIA [None]
  - ASTHENIA [None]
  - HOSPITALISATION [None]
  - MUSCULAR WEAKNESS [None]
  - PAIN [None]
